FAERS Safety Report 6823803-2 (Version None)
Quarter: 2010Q3

REPORT INFORMATION
  Report Type: 
  Country: None (occurrence: None)
  Receive Date: 20100708
  Receipt Date: 20060902
  Transmission Date: 20110219
  Serious: No
  Sender: FDA-Public Use
  Company Number: US-PFIZER INC-2006108695

PATIENT
  Sex: Female
  Weight: 51.71 kg

DRUGS (21)
  1. CHANTIX [Suspect]
     Indication: SMOKING CESSATION THERAPY
     Dates: start: 20060801
  2. ACETYLSALICYLIC ACID [Concomitant]
  3. ZYRTEC [Concomitant]
  4. LEXAPRO [Concomitant]
  5. FOSAMAX [Concomitant]
  6. REGLAN [Concomitant]
  7. VESICARE [Concomitant]
  8. ABILIFY [Concomitant]
  9. ACIPHEX [Concomitant]
  10. MONTELUKAST SODIUM [Concomitant]
  11. MUCINEX [Concomitant]
  12. ENULOSE [Concomitant]
  13. COLACE [Concomitant]
  14. RITALIN [Concomitant]
  15. VICODIN [Concomitant]
  16. ATIVAN [Concomitant]
  17. IRON PREPARATIONS [Concomitant]
  18. CALCIUM CARBONATE [Concomitant]
  19. DUONEB [Concomitant]
  20. ZOLPIDEM TARTRATE [Concomitant]
  21. LOTREL [Concomitant]

REACTIONS (1)
  - DRUG INEFFECTIVE [None]
